FAERS Safety Report 24680564 (Version 1)
Quarter: 2024Q4

REPORT INFORMATION
  Report Type: Report from Study
  Country: US (occurrence: US)
  Receive Date: 20241129
  Receipt Date: 20241129
  Transmission Date: 20250115
  Serious: Yes (Other)
  Sender: UCB
  Company Number: US-UCBSA-2024061688

PATIENT
  Age: 17 Year
  Sex: Male
  Weight: 53.3 kg

DRUGS (3)
  1. FINTEPLA [Suspect]
     Active Substance: FENFLURAMINE
     Indication: Severe myoclonic epilepsy of infancy
     Dosage: 5.9 MILLILITER, 2X/DAY (BID)
     Route: 048
     Dates: start: 20240725
  2. FINTEPLA [Suspect]
     Active Substance: FENFLURAMINE
     Indication: Status epilepticus
     Dosage: 0.49 MG/KG/DAY
     Route: 048
     Dates: start: 2024
  3. FINTEPLA [Suspect]
     Active Substance: FENFLURAMINE
     Indication: Off label use

REACTIONS (2)
  - Aortic dilatation [Unknown]
  - Off label use [Unknown]

NARRATIVE: CASE EVENT DATE: 20240725
